FAERS Safety Report 6278480-9 (Version None)
Quarter: 2009Q3

REPORT INFORMATION
  Report Type: 
  Country: None (occurrence: None)
  Receive Date: 20090721
  Receipt Date: 20090716
  Transmission Date: 20100115
  Serious: Yes (Death, Other)
  Sender: FDA-Public Use
  Company Number: 2009SP015717

PATIENT
  Age: 18 Year
  Sex: Female
  Weight: 42 kg

DRUGS (6)
  1. POSACONAZOLE [Suspect]
     Indication: FUNGAL INFECTION
     Dosage: 10 ML;BID;PO
     Route: 048
     Dates: start: 20090109
  2. AMBISOME [Suspect]
     Indication: FUNGAL INFECTION
     Dosage: 5 MG;QD;INDRP
     Route: 041
     Dates: start: 20090309, end: 20090428
  3. CYTARABINE [Suspect]
     Indication: ACUTE MYELOID LEUKAEMIA
     Dosage: 1000 MG;QD;INDRP
     Route: 041
     Dates: start: 20090409, end: 20090414
  4. IDARUBICIN HCL [Suspect]
     Indication: ACUTE MYELOID LEUKAEMIA
     Dosage: 8 MG;ONCE;INDRP
     Route: 041
     Dates: start: 20090409, end: 20090409
  5. VORICONAZOLE [Concomitant]
  6. CASPOFUNGIN [Concomitant]

REACTIONS (7)
  - ACUTE MYELOID LEUKAEMIA [None]
  - ALTERED STATE OF CONSCIOUSNESS [None]
  - CARDIOMEGALY [None]
  - CARDIOMYOPATHY [None]
  - CONVULSION [None]
  - HYPOTENSION [None]
  - MULTI-ORGAN FAILURE [None]
